FAERS Safety Report 4944442-4 (Version None)
Quarter: 2006Q1

REPORT INFORMATION
  Report Type: 
  Country: None (occurrence: None)
  Receive Date: 20060315
  Receipt Date: 20060309
  Transmission Date: 20060701
  Serious: Yes (Death, Life-Threatening, Disabling)
  Sender: FDA-Public Use
  Company Number: US-MERCK-0603USA01667

PATIENT
  Sex: Male

DRUGS (1)
  1. VIOXX [Suspect]
     Indication: OSTEOARTHRITIS
     Route: 048

REACTIONS (1)
  - MYOCARDIAL INFARCTION [None]
